FAERS Safety Report 7283870-1 (Version None)
Quarter: 2011Q1

REPORT INFORMATION
  Report Type: 
  Country: None (occurrence: None)
  Receive Date: 20110209
  Receipt Date: 20110202
  Transmission Date: 20110831
  Serious: Yes (Other)
  Sender: FDA-Public Use
  Company Number: BR-PFIZER INC-2011024545

PATIENT
  Age: 78 Year
  Sex: Female
  Weight: 57 kg

DRUGS (4)
  1. DETRUSITOL [Suspect]
     Indication: MICTURITION URGENCY
     Dosage: 2 MG, 1X/DAY
     Route: 048
     Dates: start: 20100101, end: 20101201
  2. OSCAL 500-D [Concomitant]
     Dosage: UNK
  3. SERTRALINE [Concomitant]
     Indication: DEPRESSION
     Dosage: UNK
  4. VITAMIN E [Concomitant]
     Dosage: UNK

REACTIONS (5)
  - WEIGHT INCREASED [None]
  - NERVOUSNESS [None]
  - NO THERAPEUTIC RESPONSE [None]
  - ANXIETY [None]
  - HYPERTENSION [None]
